FAERS Safety Report 8330145-5 (Version None)
Quarter: 2012Q2

REPORT INFORMATION
  Report Type: 
  Country: None (occurrence: None)
  Receive Date: 20120502
  Receipt Date: 20100126
  Transmission Date: 20120825
  Serious: No
  Sender: FDA-Public Use
  Company Number: US-TEVA-2010000513

PATIENT
  Sex: Female
  Weight: 77.18 kg

DRUGS (10)
  1. PROVIGIL [Suspect]
     Dosage: 150 MILLIGRAM;
     Route: 048
  2. SINGULAIR [Concomitant]
  3. FEXOFENADINE [Concomitant]
  4. NUVIGIL [Suspect]
     Indication: SOMNOLENCE
     Dosage: 150 MILLIGRAM;
     Route: 048
     Dates: start: 20100122
  5. NEXIUM [Concomitant]
  6. PROVIGIL [Suspect]
     Route: 048
  7. CLONAZEPAM [Concomitant]
  8. SYNTHROID [Concomitant]
  9. BIRTH CONTROL [Concomitant]
  10. HYDROXYZINE HCL [Concomitant]

REACTIONS (1)
  - VIRAL INFECTION [None]
